FAERS Safety Report 5297798-X (Version None)
Quarter: 2007Q2

REPORT INFORMATION
  Report Type: 
  Country: None (occurrence: None)
  Receive Date: 20070412
  Receipt Date: 20070412
  Transmission Date: 20071010
  Serious: Yes (Hospitalization)
  Sender: FDA-Public Use
  Company Number: None

PATIENT
  Sex: Male

DRUGS (2)
  1. TAXOTERE [Suspect]
     Dosage: 60.00
  2. OXALIPLATIN [Suspect]
     Dosage: 100.00

REACTIONS (1)
  - PYREXIA [None]
